FAERS Safety Report 8121790-0 (Version None)
Quarter: 2011Q4

REPORT INFORMATION
  Report Type: 
  Country: None (occurrence: None)
  Receive Date: 20111227
  Receipt Date: 20111115
  Transmission Date: 20120403
  Serious: No
  Sender: FDA-Public Use
  Company Number: PHEH2011US06148

PATIENT
  Age: 55 Year
  Sex: Female
  Weight: 90.7 kg

DRUGS (3)
  1. XANAX [Concomitant]
  2. SOMA [Concomitant]
  3. GILENYA [Suspect]
     Dosage: 0.5 MG, ORAL
     Route: 048

REACTIONS (1)
  - DECREASED APPETITE [None]
